FAERS Safety Report 17219091 (Version 1)
Quarter: 2020Q1

REPORT INFORMATION
  Report Type: Spontaneous
  Country: US (occurrence: US)
  Receive Date: 20191230
  Receipt Date: 20191230
  Transmission Date: 20200409
  Serious: No
  Sender: FDA-Public Use
  Company Number: None

PATIENT
  Age: 51 Year
  Sex: Female
  Weight: 112.1 kg

DRUGS (1)
  1. INJECTAFER [Suspect]
     Active Substance: FERRIC CARBOXYMALTOSE
     Indication: IRON DEFICIENCY ANAEMIA
     Dosage: ?          OTHER FREQUENCY:ONCE A WEEK X2;?
     Route: 042

REACTIONS (6)
  - Skin disorder [None]
  - Rash erythematous [None]
  - Pruritus [None]
  - Cough [None]
  - Skin lesion [None]
  - Rash papular [None]

NARRATIVE: CASE EVENT DATE: 20191227
